FAERS Safety Report 6649629-0 (Version None)
Quarter: 2010Q1

REPORT INFORMATION
  Report Type: 
  Country: None (occurrence: None)
  Receive Date: 20100324
  Receipt Date: 20090305
  Transmission Date: 20100710
  Serious: Yes (Other)
  Sender: FDA-Public Use
  Company Number: US-AMGEN-QUU336983

PATIENT
  Sex: Female

DRUGS (4)
  1. NEULASTA [Suspect]
     Indication: CHEMOTHERAPY
     Route: 065
     Dates: start: 20090201
  2. PREDNISONE [Concomitant]
  3. UNSPECIFIED ANTINEOPLASTIC AGENT [Concomitant]
     Route: 042
  4. UNSPECIFIED MEDICATION [Concomitant]

REACTIONS (6)
  - HYPERSENSITIVITY [None]
  - JOINT SWELLING [None]
  - LACRIMATION INCREASED [None]
  - OCULAR HYPERAEMIA [None]
  - PAIN [None]
  - RHINORRHOEA [None]
